FAERS Safety Report 19701437 (Version 2)
Quarter: 2021Q3

REPORT INFORMATION
  Report Type: Spontaneous
  Country: US (occurrence: US)
  Receive Date: 20210814
  Receipt Date: 20210930
  Transmission Date: 20211014
  Serious: No
  Sender: FDA-Public Use
  Company Number: US-EMD SERONO-9255799

PATIENT
  Age: 33 Year
  Sex: Female

DRUGS (2)
  1. MAVENCLAD [Suspect]
     Active Substance: CLADRIBINE
     Dosage: MONTH TWO THERAPY
     Route: 048
     Dates: start: 202104
  2. MAVENCLAD [Suspect]
     Active Substance: CLADRIBINE
     Indication: MULTIPLE SCLEROSIS
     Dosage: MONTH ONE THERAPY
     Route: 048
     Dates: start: 202003

REACTIONS (2)
  - Tooth loss [Unknown]
  - Tooth fracture [Unknown]

NARRATIVE: CASE EVENT DATE: 20210426
